FAERS Safety Report 13621719 (Version 1)
Quarter: 2017Q2

REPORT INFORMATION
  Report Type: Spontaneous
  Country: US (occurrence: US)
  Receive Date: 20170607
  Receipt Date: 20170607
  Transmission Date: 20170830
  Serious: No
  Sender: FDA-Public Use
  Company Number: US-ROCHE-1770615

PATIENT
  Sex: Male

DRUGS (2)
  1. KLONOPIN [Suspect]
     Active Substance: CLONAZEPAM
     Indication: ANXIETY
     Dosage: 1/2 TO 1 BY MOUTH TWICE A DAY AS NEEDED
     Route: 048
  2. KLONOPIN [Suspect]
     Active Substance: CLONAZEPAM
     Indication: STRESS

REACTIONS (5)
  - Therapeutic response shortened [Unknown]
  - Depression [Unknown]
  - Agitation [Unknown]
  - Urine output increased [Unknown]
  - Confusional state [Unknown]
